FAERS Safety Report 5273835-3 (Version None)
Quarter: 2007Q1

REPORT INFORMATION
  Report Type: 
  Country: None (occurrence: None)
  Receive Date: 20070323
  Receipt Date: 20070308
  Transmission Date: 20070707
  Serious: Yes (Other)
  Sender: FDA-Public Use
  Company Number: US-AMGEN-KDL208608

PATIENT
  Sex: Female

DRUGS (2)
  1. ENBREL [Suspect]
     Indication: PSORIATIC ARTHROPATHY
     Route: 058
     Dates: start: 20050101
  2. NAPROXEN [Concomitant]

REACTIONS (10)
  - BLOOD PRESSURE INCREASED [None]
  - DRY SKIN [None]
  - FATIGUE [None]
  - HEADACHE [None]
  - HERPES SIMPLEX [None]
  - LARYNGITIS [None]
  - LUNG NEOPLASM [None]
  - OEDEMA PERIPHERAL [None]
  - PNEUMONIA [None]
  - RENAL MASS [None]
